FAERS Safety Report 21223086 (Version 1)
Quarter: 2022Q3

REPORT INFORMATION
  Report Type: Report from Study
  Country: US (occurrence: US)
  Receive Date: 20220817
  Receipt Date: 20220817
  Transmission Date: 20221026
  Serious: Yes (Death, Other)
  Sender: FDA-Public Use
  Company Number: US-TAKEDA-2022TUS033701

PATIENT
  Sex: Male

DRUGS (1)
  1. IXAZOMIB [Suspect]
     Active Substance: IXAZOMIB
     Indication: Waldenstrom^s macroglobulinaemia
     Dosage: 4 MILLIGRAM, 1/WEEK
     Route: 065
     Dates: start: 20220518

REACTIONS (2)
  - Death [Fatal]
  - Off label use [Unknown]
